FAERS Safety Report 7302823-8 (Version None)
Quarter: 2011Q1

REPORT INFORMATION
  Report Type: 
  Country: None (occurrence: None)
  Receive Date: 20110218
  Receipt Date: 20110211
  Transmission Date: 20110831
  Serious: Yes (Other)
  Sender: FDA-Public Use
  Company Number: US-CEPHALON-2011000522

PATIENT
  Sex: Female
  Weight: 91 kg

DRUGS (6)
  1. NUVIGIL [Suspect]
     Indication: SOMNOLENCE
     Route: 048
     Dates: start: 20110128, end: 20110130
  2. LEVOXYL [Concomitant]
  3. LASIX [Concomitant]
  4. SIMVASTATIN [Concomitant]
  5. DIOVAN [Concomitant]
  6. DEXTROAMPHETAMINE [Concomitant]
     Dates: start: 20101223

REACTIONS (11)
  - FEELING ABNORMAL [None]
  - INSOMNIA [None]
  - GINGIVITIS [None]
  - ANXIETY [None]
  - STOMATITIS [None]
  - DYSPNOEA [None]
  - OROPHARYNGEAL PAIN [None]
  - HYPERSENSITIVITY [None]
  - SWOLLEN TONGUE [None]
  - ORAL PAIN [None]
  - TONGUE DISORDER [None]
